FAERS Safety Report 8281446-0 (Version None)
Quarter: 2012Q2

REPORT INFORMATION
  Report Type: 
  Country: None (occurrence: None)
  Receive Date: 20120411
  Receipt Date: 20120411
  Transmission Date: 20120825
  Serious: Yes (Other)
  Sender: FDA-Public Use
  Company Number: None

PATIENT
  Age: 76 Year
  Sex: Female
  Weight: 57.1532 kg

DRUGS (2)
  1. PROLIA [Suspect]
     Indication: OSTEOPOROSIS
     Dosage: 2 TIMES IM
     Route: 030
     Dates: start: 20111005
  2. PROLIA [Suspect]
     Indication: OSTEOPOROSIS
     Dosage: 2 TIMES IM
     Route: 030
     Dates: start: 20110426

REACTIONS (2)
  - URINARY TRACT INFECTION [None]
  - RASH [None]
